FAERS Safety Report 10074762 (Version 1)
Quarter: 2014Q2

REPORT INFORMATION
  Report Type: Spontaneous
  Country: FR (occurrence: FR)
  Receive Date: 20140414
  Receipt Date: 20140414
  Transmission Date: 20141212
  Serious: Yes (Other)
  Sender: FDA-Public Use
  Company Number: FR-BIOGENIDEC-2014BI033209

PATIENT
  Age: 28 Year
  Sex: Female

DRUGS (6)
  1. AVONEX [Suspect]
     Indication: MULTIPLE SCLEROSIS
     Route: 030
     Dates: start: 200808, end: 2012
  2. AVONEX [Suspect]
     Indication: MULTIPLE SCLEROSIS
     Route: 030
     Dates: start: 2012, end: 20140224
  3. LEVOTHYROX [Concomitant]
     Indication: HYPOTHYROIDISM
     Route: 048
     Dates: start: 200505
  4. BIPROFENID [Concomitant]
     Route: 048
     Dates: start: 200808, end: 2012
  5. DOLIPRANE [Concomitant]
     Route: 048
     Dates: start: 200808
  6. COLCHIMAX [Concomitant]
     Route: 048
     Dates: start: 201210

REACTIONS (2)
  - Hypersensitivity vasculitis [Not Recovered/Not Resolved]
  - Vasculitis necrotising [Not Recovered/Not Resolved]
